FAERS Safety Report 8571357-5 (Version None)
Quarter: 2012Q3

REPORT INFORMATION
  Report Type: 
  Country: None (occurrence: None)
  Receive Date: 20120806
  Receipt Date: 20120725
  Transmission Date: 20120928
  Serious: No
  Sender: FDA-Public Use
  Company Number: US-ASTRAZENECA-2012SE40058

PATIENT
  Sex: Female

DRUGS (4)
  1. SYMBICORT [Suspect]
     Indication: ASTHMA
     Dosage: 2 INHALATIONS 160/4.5 BID
     Route: 055
  2. SINGULAIR [Concomitant]
  3. FLUTICASONE PROPIONATE [Concomitant]
  4. COMBIVENT [Concomitant]

REACTIONS (2)
  - DRUG INEFFECTIVE [None]
  - CONDITION AGGRAVATED [None]
